FAERS Safety Report 19006383 (Version 1)
Quarter: 2021Q1

REPORT INFORMATION
  Report Type: Spontaneous
  Country: AU (occurrence: AU)
  Receive Date: 20210315
  Receipt Date: 20210315
  Transmission Date: 20210420
  Serious: Yes (Other)
  Sender: FDA-Public Use
  Company Number: AU-BRISTOL-MYERS SQUIBB COMPANY-BMS-2021-020840

PATIENT
  Age: 62 Year
  Sex: Female

DRUGS (5)
  1. DASATINIB. [Suspect]
     Active Substance: DASATINIB
     Dosage: 40 MILLIGRAM, QD
     Route: 065
     Dates: start: 20200617
  2. DASATINIB. [Suspect]
     Active Substance: DASATINIB
     Indication: CHRONIC MYELOID LEUKAEMIA
     Dosage: UNK
     Route: 065
     Dates: start: 20110730
  3. DASATINIB. [Suspect]
     Active Substance: DASATINIB
     Dosage: 20 MILLIGRAM, QOD
     Route: 065
  4. NILOTINIB [Suspect]
     Active Substance: NILOTINIB
     Indication: CHRONIC MYELOID LEUKAEMIA
     Dosage: UNK
     Route: 065
     Dates: start: 20110930, end: 20111030
  5. ASCIMINIB [Interacting]
     Active Substance: ASCIMINIB
     Indication: TYROSINE KINASE MUTATION
     Dosage: 1 DOSAGE FORM ( 1 DF: 40 MG), BID
     Route: 048

REACTIONS (9)
  - Cytogenetic analysis abnormal [Unknown]
  - Hepatic enzyme abnormal [Unknown]
  - Brain stem ischaemia [Unknown]
  - Hepatotoxicity [Unknown]
  - Demyelinating polyneuropathy [Unknown]
  - Jaundice [Unknown]
  - Ataxia [Not Recovered/Not Resolved]
  - Off label use [Unknown]
  - Blood bilirubin increased [Unknown]
